FAERS Safety Report 7164398-6 (Version None)
Quarter: 2010Q4

REPORT INFORMATION
  Report Type: 
  Country: None (occurrence: None)
  Receive Date: 20101215
  Receipt Date: 20101202
  Transmission Date: 20110411
  Serious: Yes (Other)
  Sender: FDA-Public Use
  Company Number: GB-SANOFI-AVENTIS-2010SA073209

PATIENT
  Age: 84 Year
  Sex: Female
  Weight: 53.1 kg

DRUGS (6)
  1. CLOPIDOGREL BISULFATE [Suspect]
     Indication: ANTIPLATELET THERAPY
     Route: 048
     Dates: start: 20101115
  2. AMIODARONE [Concomitant]
     Indication: ARRHYTHMIA
     Route: 048
  3. ASPIRIN [Concomitant]
     Indication: ANTIPLATELET THERAPY
     Route: 048
  4. LEVOTHYROXINE [Concomitant]
     Indication: HYPOTHYROIDISM
     Route: 048
  5. MOVICOL [Concomitant]
     Indication: CONSTIPATION
     Route: 048
  6. PROCOL [Concomitant]
     Route: 048

REACTIONS (1)
  - SWOLLEN TONGUE [None]
